FAERS Safety Report 22154828 (Version 1)
Quarter: 2023Q1

REPORT INFORMATION
  Report Type: Spontaneous
  Country: RO (occurrence: RO)
  Receive Date: 20230330
  Receipt Date: 20230330
  Transmission Date: 20230418
  Serious: Yes (Other)
  Sender: FDA-Public Use
  Company Number: RO-ABBVIE-4709461

PATIENT
  Age: 15 Year
  Sex: Male
  Weight: 83 kg

DRUGS (3)
  1. HUMIRA [Suspect]
     Active Substance: ADALIMUMAB
     Indication: Psoriasis
     Route: 058
     Dates: start: 20220314, end: 20221226
  2. ACETAMINOPHEN [Concomitant]
     Active Substance: ACETAMINOPHEN
     Indication: Viral upper respiratory tract infection
     Dosage: FREQUENCY TEXT: 3/DAY, START DATE TEXT: WHEN NEEDED
     Route: 048
  3. IBUPROFEN [Concomitant]
     Active Substance: IBUPROFEN
     Indication: Headache
     Dosage: FREQUENCY TEXT: 1-2/DAY, START DATE TEXT: WHEN NEEDED
     Route: 048

REACTIONS (2)
  - Alanine aminotransferase abnormal [Recovering/Resolving]
  - Aspartate aminotransferase abnormal [Recovering/Resolving]

NARRATIVE: CASE EVENT DATE: 20221209
